FAERS Safety Report 4960255-1 (Version None)
Quarter: 2006Q2

REPORT INFORMATION
  Report Type: 
  Country: None (occurrence: None)
  Receive Date: 20060403
  Receipt Date: 20060322
  Transmission Date: 20061013
  Serious: Yes (Hospitalization)
  Sender: FDA-Public Use
  Company Number: JP-JNJFOC-20050806029

PATIENT
  Sex: Female

DRUGS (20)
  1. REMICADE [Suspect]
     Route: 042
  2. REMICADE [Suspect]
     Route: 042
  3. REMICADE [Suspect]
     Route: 042
  4. REMICADE [Suspect]
     Indication: RHEUMATOID ARTHRITIS
     Route: 042
  5. METHOTREXATE [Concomitant]
     Indication: RHEUMATOID ARTHRITIS
     Route: 048
  6. RHEUMATREX [Concomitant]
     Indication: RHEUMATOID ARTHRITIS
     Route: 048
  7. FOLIAMIN [Concomitant]
     Route: 065
  8. PREDONINE [Concomitant]
     Route: 065
  9. NORVASC [Concomitant]
     Route: 048
  10. ALDACTONE [Concomitant]
     Route: 048
  11. LASIX [Concomitant]
     Route: 065
  12. TAKEPRON [Concomitant]
     Route: 048
  13. HALCION [Concomitant]
     Route: 048
  14. BASEN [Concomitant]
     Route: 048
  15. BASEN [Concomitant]
     Route: 048
  16. MARZULENE S [Concomitant]
     Route: 048
  17. MARZULENE S [Concomitant]
     Route: 048
  18. LOXONIN [Concomitant]
     Route: 048
  19. LOXONIN [Concomitant]
     Route: 048
  20. NOVOLIN 30R [Concomitant]
     Dosage: DOSE: 22 UT
     Route: 058

REACTIONS (5)
  - ARTHRALGIA [None]
  - MALAISE [None]
  - PLEURAL EFFUSION [None]
  - PYREXIA [None]
  - TUBERCULOUS PLEURISY [None]
